FAERS Safety Report 9506473 (Version 2)
Quarter: 2013Q3

REPORT INFORMATION
  Report Type: Report from Study
  Country: BR (occurrence: BR)
  Receive Date: 20130906
  Receipt Date: 20130906
  Transmission Date: 20140515
  Serious: Yes (Other)
  Sender: FDA-Public Use
  Company Number: PHHY2013BR046159

PATIENT
  Age: 79 Year
  Sex: Male

DRUGS (1)
  1. FORASEQ [Suspect]
     Indication: CHRONIC SINUSITIS
     Dosage: UNK UKN, BID

REACTIONS (3)
  - Asthma [Recovered/Resolved]
  - Apathy [Recovered/Resolved]
  - Device malfunction [Recovered/Resolved]
